FAERS Safety Report 21419560 (Version 1)
Quarter: 2022Q4

REPORT INFORMATION
  Report Type: Report from Study
  Country: US (occurrence: US)
  Receive Date: 20221006
  Receipt Date: 20221006
  Transmission Date: 20230113
  Serious: Yes (Other)
  Sender: FDA-Public Use
  Company Number: US-GILEAD-2022-0600570

PATIENT

DRUGS (1)
  1. IDELALISIB [Suspect]
     Active Substance: IDELALISIB
     Indication: B-cell lymphoma
     Route: 065

REACTIONS (28)
  - Thrombocytopenia [Unknown]
  - Selective IgG subclass deficiency [Unknown]
  - Upper respiratory tract infection [Unknown]
  - Oedema peripheral [Unknown]
  - Anaemia [Unknown]
  - Platelet count decreased [Unknown]
  - Blood creatinine decreased [Unknown]
  - Hyperglycaemia [Unknown]
  - Hypocalcaemia [Unknown]
  - Contusion [Unknown]
  - Hypomagnesaemia [Unknown]
  - Influenza like illness [Unknown]
  - Rash [Unknown]
  - White blood cell count decreased [Unknown]
  - Hyperglycaemia [Unknown]
  - Anaemia [Unknown]
  - Platelet count decreased [Unknown]
  - White blood cell count decreased [Unknown]
  - Platelet count decreased [Unknown]
  - Weight decreased [Unknown]
  - Oral pain [Unknown]
  - Dysgeusia [Unknown]
  - Insomnia [Unknown]
  - Hyperglycaemia [Unknown]
  - Dysgeusia [Unknown]
  - Upper respiratory tract infection [Unknown]
  - White blood cell count decreased [Unknown]
  - Platelet count decreased [Unknown]

NARRATIVE: CASE EVENT DATE: 20180117
